FAERS Safety Report 14790029 (Version 2)
Quarter: 2018Q3

REPORT INFORMATION
  Report Type: Report from Study
  Country: BR (occurrence: BR)
  Receive Date: 20180423
  Receipt Date: 20180731
  Transmission Date: 20181010
  Serious: Yes (Hospitalization)
  Sender: FDA-Public Use
  Company Number: PHHY2018BR014975

PATIENT
  Age: 60 Year
  Sex: Female
  Weight: 80 kg

DRUGS (2)
  1. COSENTYX [Suspect]
     Active Substance: SECUKINUMAB
     Indication: PSORIASIS
     Dosage: 300 MG, UNK (2 PENS)
     Route: 058
     Dates: start: 20170929
  2. COSENTYX [Suspect]
     Active Substance: SECUKINUMAB
     Dosage: 300 MG, UNK
     Route: 058
     Dates: start: 20180129

REACTIONS (10)
  - Weight decreased [Not Recovered/Not Resolved]
  - Decreased immune responsiveness [Recovering/Resolving]
  - Weight increased [Recovered/Resolved]
  - Pneumonia [Unknown]
  - Hypophagia [Recovering/Resolving]
  - Malaise [Unknown]
  - Psoriasis [Unknown]
  - Aphasia [Recovering/Resolving]
  - Dyspnoea [Unknown]
  - Oropharyngeal pain [Not Recovered/Not Resolved]

NARRATIVE: CASE EVENT DATE: 201802
